FAERS Safety Report 8487297 (Version 22)
Quarter: 2015Q3

REPORT INFORMATION
  Report Type: Report from Study
  Country: CA (occurrence: CA)
  Receive Date: 20120402
  Receipt Date: 20150820
  Transmission Date: 20151125
  Serious: Yes (Other)
  Sender: FDA-Public Use
  Company Number: PHHY2011CA112575

PATIENT
  Age: 47 Year
  Sex: Female

DRUGS (3)
  1. AFINITOR [Suspect]
     Active Substance: EVEROLIMUS
     Indication: NEUROENDOCRINE TUMOUR
     Dosage: 10 MG, QD
     Route: 048
     Dates: start: 20111121, end: 20140407
  2. SANDOSTATIN LAR DEPOT [Suspect]
     Active Substance: OCTREOTIDE ACETATE
     Indication: NEUROENDOCRINE TUMOUR
     Dosage: 30 MG, BIW, EVERY 2 WEEKS
     Route: 030
     Dates: start: 20110526
  3. SANDOSTATIN LAR DEPOT [Suspect]
     Active Substance: OCTREOTIDE ACETATE
     Dosage: 60 MG, BIW
     Route: 030

REACTIONS (27)
  - Ligament sprain [Unknown]
  - Neck pain [Unknown]
  - Urinary tract infection [Unknown]
  - Pain in extremity [Recovering/Resolving]
  - Lethargy [Recovered/Resolved]
  - Asthenia [Unknown]
  - Musculoskeletal discomfort [Unknown]
  - Weight decreased [Unknown]
  - Dysgeusia [Unknown]
  - Nasal congestion [Recovered/Resolved]
  - Musculoskeletal pain [Unknown]
  - Metrorrhagia [Not Recovered/Not Resolved]
  - Fatigue [Unknown]
  - Malignant neoplasm progression [Unknown]
  - Metastases to spine [Unknown]
  - Night sweats [Unknown]
  - Fall [Unknown]
  - Intervertebral disc degeneration [Unknown]
  - Alopecia [Unknown]
  - Back pain [Unknown]
  - Menstruation delayed [Unknown]
  - Arthralgia [Recovering/Resolving]
  - Cervical vertebral fracture [Unknown]
  - Menorrhagia [Recovered/Resolved]
  - Sleep disorder [Unknown]
  - Cough [Unknown]
  - Diarrhoea [Unknown]

NARRATIVE: CASE EVENT DATE: 20121006
